FAERS Safety Report 6024533-X (Version None)
Quarter: 2008Q4

REPORT INFORMATION
  Report Type: 
  Country: None (occurrence: None)
  Receive Date: 20081231
  Receipt Date: 20081003
  Transmission Date: 20090506
  Serious: No
  Sender: FDA-Public Use
  Company Number: US-BRISTOL-MYERS SQUIBB COMPANY-14357917

PATIENT
  Sex: Female

DRUGS (1)
  1. ORENCIA [Suspect]
     Dates: start: 20080929

REACTIONS (3)
  - CONTUSION [None]
  - MIGRAINE [None]
  - NAUSEA [None]
